FAERS Safety Report 17644205 (Version 5)
Quarter: 2022Q4

REPORT INFORMATION
  Report Type: Spontaneous
  Country: US (occurrence: US)
  Receive Date: 20200408
  Receipt Date: 20221227
  Transmission Date: 20230112
  Serious: No
  Sender: FDA-Public Use
  Company Number: US-PFIZER INC-2017533307

PATIENT
  Age: 59 Year
  Sex: Male

DRUGS (2)
  1. SUTENT [Suspect]
     Active Substance: SUNITINIB MALATE
     Indication: Soft tissue sarcoma
     Dosage: 12.5 MG
  2. SUTENT [Suspect]
     Active Substance: SUNITINIB MALATE
     Indication: Bone cancer
     Dosage: 25 MG, CYCLIC (ONCE A DAY, 21 DAYS ON AND 7 DAYS OFF)
     Route: 048

REACTIONS (3)
  - Off label use [Unknown]
  - Therapeutic response unexpected [Unknown]
  - Malaise [Unknown]
